FAERS Safety Report 24358913 (Version 4)
Quarter: 2025Q1

REPORT INFORMATION
  Report Type: Report from Study
  Country: US (occurrence: US)
  Receive Date: 20240924
  Receipt Date: 20250110
  Transmission Date: 20250409
  Serious: No
  Sender: SUNOVION
  Company Number: US-SUMITOMO PHARMA SWITZERLAND GMBH-2024SPA000789

PATIENT

DRUGS (2)
  1. ORGOVYX [Suspect]
     Active Substance: RELUGOLIX
     Indication: Prostate cancer
     Dosage: 360 MG, SINGLE
     Route: 048
     Dates: start: 20240716, end: 20240716
  2. ORGOVYX [Suspect]
     Active Substance: RELUGOLIX
     Dosage: 120 MG, QD
     Route: 048
     Dates: start: 20240717

REACTIONS (12)
  - Faeces hard [Unknown]
  - Nasopharyngitis [Unknown]
  - Radiotherapy [Unknown]
  - Quality of life decreased [Unknown]
  - Therapeutic procedure [Unknown]
  - Mood swings [Unknown]
  - Bladder irritation [Unknown]
  - Fatigue [Unknown]
  - Blood cholesterol increased [Unknown]
  - Asthenia [Unknown]
  - Hot flush [Unknown]
  - Product dose omission in error [Unknown]
